FAERS Safety Report 18287995 (Version 1)
Quarter: 2020Q3

REPORT INFORMATION
  Report Type: Spontaneous
  Country: US (occurrence: US)
  Receive Date: 20200918
  Receipt Date: 20200918
  Transmission Date: 20201103
  Serious: Yes (Death, Hospitalization)
  Sender: FDA-Public Use
  Company Number: None

PATIENT
  Age: 70 Year
  Sex: Male
  Weight: 189.2 kg

DRUGS (1)
  1. RITUXIMAB (MOAB C2B8 ANTI CD20, CHIMERIC) [Suspect]
     Active Substance: RITUXIMAB
     Dates: end: 20200611

REACTIONS (9)
  - Pulmonary oedema [None]
  - Cardio-respiratory arrest [None]
  - Colitis [None]
  - Mental disorder [None]
  - Tachypnoea [None]
  - Diarrhoea [None]
  - Engraftment syndrome [None]
  - Ileus [None]
  - Cardiac arrest [None]

NARRATIVE: CASE EVENT DATE: 20200901
